FAERS Safety Report 16850521 (Version 1)
Quarter: 2019Q3

REPORT INFORMATION
  Report Type: Spontaneous
  Country: US (occurrence: US)
  Receive Date: 20190925
  Receipt Date: 20190925
  Transmission Date: 20191005
  Serious: No
  Sender: FDA-Public Use
  Company Number: US-UPSHER-SMITH LABORATORIES, LLC-2018USL00483

PATIENT
  Sex: Female
  Weight: 88.44 kg

DRUGS (5)
  1. GABAPENTIN. [Concomitant]
     Active Substance: GABAPENTIN
     Dosage: 1 OR 2 A DAY IN THE SUMMER
  2. METOPROLOL. [Concomitant]
     Active Substance: METOPROLOL
  3. GENERIC DETROL [Concomitant]
     Active Substance: TOLTERODINE TARTRATE
  4. BACLOFEN. [Suspect]
     Active Substance: BACLOFEN
     Indication: MUSCLE SPASMS
     Dosage: 5 MG, EVERY 8 HOURS AS NEEDED
     Route: 048
     Dates: start: 2018, end: 201810
  5. GABAPENTIN. [Concomitant]
     Active Substance: GABAPENTIN
     Dosage: UNK, 3X/DAY

REACTIONS (2)
  - Therapeutic product effect decreased [Recovered/Resolved]
  - Constipation [Recovered/Resolved]

NARRATIVE: CASE EVENT DATE: 2018
